FAERS Safety Report 5112747-2 (Version None)
Quarter: 2006Q3

REPORT INFORMATION
  Report Type: 
  Country: None (occurrence: None)
  Receive Date: 20060919
  Receipt Date: 20060905
  Transmission Date: 20061208
  Serious: Yes (Hospitalization, Other)
  Sender: FDA-Public Use
  Company Number: 2006AP000647

PATIENT
  Sex: Male

DRUGS (2)
  1. MINOXIDIL [Suspect]
     Indication: ALOPECIA
     Dosage: 0.5 ML; CUT_SOL; TOP; BID TOP
     Route: 061
     Dates: start: 20060101, end: 20060101
  2. MINOXIDIL [Suspect]

REACTIONS (5)
  - DIZZINESS [None]
  - EXTRAOCULAR MUSCLE PARESIS [None]
  - INFECTION [None]
  - SCAR [None]
  - SKIN LESION [None]
